FAERS Safety Report 21116651 (Version 2)
Quarter: 2022Q3

REPORT INFORMATION
  Report Type: Spontaneous
  Country: US (occurrence: US)
  Receive Date: 20220722
  Receipt Date: 20220725
  Transmission Date: 20221026
  Serious: Yes (Other)
  Sender: FDA-Public Use
  Company Number: US-JNJFOC-20220724302

PATIENT
  Age: 12 Month
  Sex: Female

DRUGS (2)
  1. MOTRIN INFANTS [Suspect]
     Active Substance: IBUPROFEN
     Indication: Pyrexia
     Dosage: I AM USING ABOUT 1.875ML PER DOSE FROM 7-JUL-2022 TO 8-JULY-2022, I HAD 3 DOSES ADMINISTERED
     Route: 065
     Dates: start: 20220531, end: 20220708
  2. CEFDINIR [Suspect]
     Active Substance: CEFDINIR
     Indication: Ear infection
     Route: 065

REACTIONS (1)
  - Erythema multiforme [Not Recovered/Not Resolved]

NARRATIVE: CASE EVENT DATE: 20220602
